FAERS Safety Report 8204439-8 (Version None)
Quarter: 2012Q1

REPORT INFORMATION
  Report Type: 
  Country: None (occurrence: None)
  Receive Date: 20120227
  Receipt Date: 20111102
  Transmission Date: 20120608
  Serious: No
  Sender: FDA-Public Use
  Company Number: 338654

PATIENT
  Sex: Female

DRUGS (5)
  1. LEVOXYL [Concomitant]
  2. ATIVAN [Concomitant]
  3. VICTOZA [Suspect]
     Indication: TYPE 2 DIABETES MELLITUS
     Dosage: 0.6 U, SUBCUTANEOUS
     Route: 058
     Dates: start: 20111030
  4. CYMBALTA [Concomitant]
  5. JANUMET [Concomitant]

REACTIONS (3)
  - INJECTION SITE PAIN [None]
  - DIZZINESS [None]
  - INJECTION SITE HAEMATOMA [None]
